FAERS Safety Report 11124322 (Version 3)
Quarter: 2015Q3

REPORT INFORMATION
  Report Type: Report from Study
  Country: DE (occurrence: DE)
  Receive Date: 20150520
  Receipt Date: 20150813
  Transmission Date: 20151125
  Serious: Yes (Death, Hospitalization)
  Sender: FDA-Public Use
  Company Number: DE-BRISTOL-MYERS SQUIBB COMPANY-BMS-2015-022240

PATIENT
  Age: 51 Year
  Sex: Male
  Weight: 50 kg

DRUGS (3)
  1. PACLITAXEL. [Suspect]
     Active Substance: PACLITAXEL
     Indication: MALIGNANT NEOPLASM OF UNKNOWN PRIMARY SITE
     Dosage: 294 MG, Q3WK
     Route: 042
     Dates: start: 20150306, end: 20150306
  2. CARBOPLATIN. [Suspect]
     Active Substance: CARBOPLATIN
     Indication: MALIGNANT NEOPLASM OF UNKNOWN PRIMARY SITE
     Dosage: 450 MG, Q3WK
     Route: 042
     Dates: start: 20150306, end: 20150306
  3. CETUXIMAB [Suspect]
     Active Substance: CETUXIMAB
     Indication: MALIGNANT NEOPLASM OF UNKNOWN PRIMARY SITE
     Dosage: 672 MG, QWK
     Route: 042
     Dates: start: 20150306, end: 20150320

REACTIONS (4)
  - Cachexia [Fatal]
  - Anaemia [Fatal]
  - Malignant neoplasm progression [Fatal]
  - Pneumonia [Fatal]

NARRATIVE: CASE EVENT DATE: 20150327
